FAERS Safety Report 9185573 (Version 1)
Quarter: 2012Q4

REPORT INFORMATION
  Report Type: 
  Country: GB (occurrence: GB)
  Receive Date: 20121101
  Receipt Date: 20121101
  Transmission Date: 20130627
  Serious: Yes (Disabling)
  Sender: FDA-Public Use
  Company Number: GB-MYLANLABS-2012S1021882

PATIENT
  Age: 80 Year
  Sex: Female

DRUGS (9)
  1. WARFARIN [Suspect]
     Indication: PRODUCT USED FOR UNKNOWN INDICATION
     Route: 048
  2. ALENDRONIC ACID [Concomitant]
     Indication: OSTEOPOROSIS
     Route: 048
  3. CALCEOS [Concomitant]
     Indication: OSTEOPOROSIS
     Route: 048
  4. DALTEPARIN [Concomitant]
     Indication: PRODUCT USED FOR UNKNOWN INDICATION
  5. DOXAZOSIN [Concomitant]
     Indication: ESSENTIAL HYPERTENSION
     Route: 048
  6. HYPROMELLOSE [Concomitant]
     Indication: DRY EYE
     Route: 061
  7. OMEPRAZOLE [Concomitant]
     Indication: DYSPEPSIA
     Route: 048
  8. PARACETAMOL [Concomitant]
     Indication: PAIN
     Route: 048
  9. TRAMADOL [Concomitant]
     Indication: PAIN
     Route: 048

REACTIONS (4)
  - Memory impairment [Recovered/Resolved]
  - Aphasia [Recovered/Resolved]
  - Dizziness [Recovered/Resolved]
  - Headache [Recovered/Resolved]
